FAERS Safety Report 4428403-X (Version None)
Quarter: 2004Q3

REPORT INFORMATION
  Report Type: 
  Country: None (occurrence: None)
  Receive Date: 20040818
  Receipt Date: 20040715
  Transmission Date: 20050211
  Serious: Yes (Life-Threatening, Hospitalization, Disabling, Other)
  Sender: FDA-Public Use
  Company Number: 200415406US

PATIENT
  Sex: Female

DRUGS (1)
  1. LOVENOX [Suspect]
     Dosage: DOSE: UNK
     Route: 065

REACTIONS (11)
  - ACTIVATED PARTIAL THROMBOPLASTIN TIME PROLONGED [None]
  - APGAR SCORE LOW [None]
  - EYE HAEMORRHAGE [None]
  - HAEMORRHAGE [None]
  - HYPOACUSIS [None]
  - INTRAVENTRICULAR HAEMORRHAGE [None]
  - MATERNAL DRUGS AFFECTING FOETUS [None]
  - PROTHROMBIN TIME PROLONGED [None]
  - SUBARACHNOID HAEMORRHAGE [None]
  - THROMBOCYTOPENIA [None]
  - VISUAL DISTURBANCE [None]
